FAERS Safety Report 6439844-3 (Version None)
Quarter: 2009Q4

REPORT INFORMATION
  Report Type: 
  Country: None (occurrence: None)
  Receive Date: 20091113
  Receipt Date: 20091103
  Transmission Date: 20100525
  Serious: Yes (Hospitalization)
  Sender: FDA-Public Use
  Company Number: AT-GENENTECH-293778

PATIENT
  Sex: Female

DRUGS (4)
  1. TRASTUZUMAB [Suspect]
     Indication: BREAST CANCER
     Dosage: 384 MG, Q3W
     Route: 042
     Dates: start: 20090929
  2. AVASTIN [Suspect]
     Indication: BREAST CANCER
     Dosage: 960 MG, Q3W
     Route: 042
     Dates: start: 20090929
  3. DOCETAXEL [Suspect]
     Indication: BREAST CANCER
     Dosage: 1275 MG, Q3W
     Route: 042
     Dates: start: 20090929
  4. CARBOPLATIN [Suspect]
     Indication: BREAST CANCER
     Dosage: 5742 MG, Q3W
     Route: 042
     Dates: start: 20090929

REACTIONS (1)
  - PAIN OF SKIN [None]
